FAERS Safety Report 6284573-2 (Version None)
Quarter: 2009Q3

REPORT INFORMATION
  Report Type: 
  Country: None (occurrence: None)
  Receive Date: 20090727
  Receipt Date: 20090616
  Transmission Date: 20100115
  Serious: No
  Sender: FDA-Public Use
  Company Number: US-ALEXION-A200900497

PATIENT
  Sex: Male

DRUGS (14)
  1. SOLIRIS [Suspect]
     Indication: PAROXYSMAL NOCTURNAL HAEMOGLOBINURIA
     Dosage: 600 MG, QW
     Route: 042
     Dates: start: 20090323, end: 20090401
  2. SOLIRIS [Suspect]
     Dosage: 900 MG, Q2W
     Route: 042
     Dates: start: 20090420
  3. GLUCOTROL [Concomitant]
     Indication: DIABETES MELLITUS
     Dosage: QD
     Route: 048
  4. MECLIZINE                          /00072801/ [Concomitant]
     Dosage: 25 MG, PRN, QD
     Route: 048
  5. PAROXETINE HCL [Concomitant]
     Indication: DEPRESSION
     Dosage: 20 MG, QD
     Route: 048
  6. PIROXICAM [Concomitant]
     Dosage: 20 MG, QD
     Route: 048
  7. SIMVASTATIN [Concomitant]
     Indication: HYPERLIPIDAEMIA
     Dosage: 40 MG, QD
  8. CLARITIN                           /00917501/ [Concomitant]
     Dosage: UNK
     Route: 048
  9. COZAAR [Concomitant]
     Indication: HYPERTENSION
     Dosage: 100 MG, QD
     Route: 048
  10. COLACE [Concomitant]
     Dosage: UNK
     Route: 048
  11. FUROSEMIDE [Concomitant]
     Indication: HYPERTENSION
     Dosage: 40 MG, QD
     Route: 048
  12. NEURONTIN [Concomitant]
     Dosage: 300 MG, UNK
     Route: 048
  13. TERAZOSIN [Concomitant]
     Indication: HYPERTENSION
     Dosage: 5 MG, QD
     Route: 048
  14. VICODIN [Concomitant]
     Indication: PAIN
     Dosage: 5/500 MG, PRN, Q6H
     Route: 048

REACTIONS (1)
  - INSOMNIA [None]
